FAERS Safety Report 24366552 (Version 3)
Quarter: 2024Q4

REPORT INFORMATION
  Report Type: Spontaneous
  Country: RU (occurrence: RU)
  Receive Date: 20240926
  Receipt Date: 20241113
  Transmission Date: 20250114
  Serious: Yes (Death, Hospitalization, Other)
  Sender: GILEAD
  Company Number: RU-GILEAD-2024-0689016

PATIENT
  Age: 51 Year
  Sex: Male

DRUGS (2)
  1. EPCLUSA [Suspect]
     Active Substance: SOFOSBUVIR\VELPATASVIR
     Indication: Chronic hepatitis C
     Dosage: UNK
     Route: 065
     Dates: start: 20240712, end: 202407
  2. EPCLUSA [Suspect]
     Active Substance: SOFOSBUVIR\VELPATASVIR
     Indication: Fibrosis

REACTIONS (2)
  - Death [Fatal]
  - Gastrointestinal haemorrhage [Unknown]
